FAERS Safety Report 8163441-5 (Version None)
Quarter: 2012Q1

REPORT INFORMATION
  Report Type: 
  Country: None (occurrence: None)
  Receive Date: 20120224
  Receipt Date: 20120214
  Transmission Date: 20120608
  Serious: Yes (Death)
  Sender: FDA-Public Use
  Company Number: FR-ALEXION PHARMACEUTICALS INC.-A201200008

PATIENT
  Sex: Female

DRUGS (17)
  1. EUPRESSYL [Concomitant]
  2. VORICONAZOLE [Concomitant]
  3. ANTI-THYMOCYTE GLOBULIN EQUINE NOS [Concomitant]
     Dosage: UNK
     Dates: start: 20111110, end: 20111111
  4. MYCOPHENOLATE MOFETIL (CELLCEPT) [Concomitant]
  5. CASPOFUNGIN [Concomitant]
  6. CEFEPIME HYDROCHLORIDE [Concomitant]
     Indication: ESCHERICHIA INFECTION
     Dosage: UNK
     Dates: end: 20111217
  7. CYCLOSPORINE [Concomitant]
     Dosage: UNK
     Dates: start: 20111112
  8. NOREPINEPHRINE BITARTRATE [Concomitant]
  9. ANCOTIL [Concomitant]
  10. FLAGYL [Concomitant]
     Indication: ESCHERICHIA INFECTION
     Dosage: UNK
     Dates: end: 20111217
  11. VANCOMYCIN [Concomitant]
     Dosage: UNK
     Dates: end: 20111122
  12. SOLIRIS [Suspect]
     Indication: THROMBOTIC MICROANGIOPATHY
     Dosage: 900 MG, QW
     Route: 042
     Dates: start: 20111101
  13. CLAFORAN [Concomitant]
     Dosage: UNK
     Dates: end: 20111122
  14. SOLIRIS [Suspect]
     Indication: OFF LABEL USE
  15. LOXEN [Concomitant]
  16. RAMIPRIL [Concomitant]
  17. FLUCONAZOLE [Concomitant]
     Indication: CANDIDIASIS

REACTIONS (7)
  - RENAL TUBULAR DISORDER [None]
  - ESCHERICHIA INFECTION [None]
  - PANCREATITIS [None]
  - SHOCK HAEMORRHAGIC [None]
  - GASTROINTESTINAL HAEMORRHAGE [None]
  - NEPHROTIC SYNDROME [None]
  - CANDIDIASIS [None]
